FAERS Safety Report 15159889 (Version 2)
Quarter: 2018Q4

REPORT INFORMATION
  Report Type: Report from Study
  Country: JP (occurrence: JP)
  Receive Date: 20180718
  Receipt Date: 20181030
  Transmission Date: 20190204
  Serious: Yes (Death, Hospitalization, Other)
  Sender: FDA-Public Use
  Company Number: JP-SA-2018SA184967

PATIENT
  Age: 70 Year
  Sex: Female

DRUGS (18)
  1. DARBEPOETIN ALFA RECOMBINANT [Suspect]
     Active Substance: DARBEPOETIN ALFA
     Dosage: UNK
     Route: 042
     Dates: start: 20151209, end: 20160120
  2. DARBEPOETIN ALFA RECOMBINANT [Suspect]
     Active Substance: DARBEPOETIN ALFA
     Dosage: UNK
     Route: 042
     Dates: start: 20160120, end: 20160127
  3. DARBEPOETIN ALFA RECOMBINANT [Suspect]
     Active Substance: DARBEPOETIN ALFA
     Dosage: UNK
     Route: 042
     Dates: start: 20151118, end: 20151209
  4. DARBEPOETIN ALFA RECOMBINANT [Suspect]
     Active Substance: DARBEPOETIN ALFA
     Dosage: UNK
     Route: 042
     Dates: start: 20170319
  5. ROCALTROL [Suspect]
     Active Substance: CALCITRIOL
     Indication: PRODUCT USED FOR UNKNOWN INDICATION
     Dosage: UNK
     Route: 042
     Dates: start: 20141208, end: 20160415
  6. ROCALTROL [Suspect]
     Active Substance: CALCITRIOL
     Dosage: UNK
     Route: 042
     Dates: start: 20160708, end: 20170515
  7. SEVELAMER HYDROCHLORIDE. [Suspect]
     Active Substance: SEVELAMER HYDROCHLORIDE
     Indication: PRODUCT USED FOR UNKNOWN INDICATION
     Dosage: UNK
     Route: 048
     Dates: start: 20140428
  8. DARBEPOETIN ALFA RECOMBINANT [Suspect]
     Active Substance: DARBEPOETIN ALFA
     Dosage: UNK
     Route: 042
     Dates: start: 20160127, end: 20160202
  9. ROCALTROL [Suspect]
     Active Substance: CALCITRIOL
     Dosage: UNK
     Route: 042
     Dates: start: 20170515
  10. CINACALCET HYDROCHLORIDE. [Suspect]
     Active Substance: CINACALCET HYDROCHLORIDE
     Dosage: UNK
     Route: 048
     Dates: start: 20150312, end: 20170726
  11. DARBEPOETIN ALFA RECOMBINANT [Suspect]
     Active Substance: DARBEPOETIN ALFA
     Dosage: UNK
     Route: 042
     Dates: start: 20151007, end: 20151118
  12. DARBEPOETIN ALFA RECOMBINANT [Suspect]
     Active Substance: DARBEPOETIN ALFA
     Dosage: UNK
     Route: 042
     Dates: start: 20160330, end: 20160418
  13. DARBEPOETIN ALFA RECOMBINANT [Suspect]
     Active Substance: DARBEPOETIN ALFA
     Dosage: UNK
     Route: 042
     Dates: start: 20150710, end: 20151007
  14. ROCALTROL [Suspect]
     Active Substance: CALCITRIOL
     Dosage: UNK
     Route: 042
     Dates: start: 20170517
  15. EPOETIN ALFA [Suspect]
     Active Substance: ERYTHROPOIETIN
     Indication: PRODUCT USED FOR UNKNOWN INDICATION
     Dosage: UNK
     Route: 042
     Dates: start: 20170120, end: 20170215
  16. DARBEPOETIN ALFA RECOMBINANT [Suspect]
     Active Substance: DARBEPOETIN ALFA
     Dosage: UNK
     Route: 042
     Dates: start: 20150626, end: 20150710
  17. DARBEPOETIN ALFA RECOMBINANT [Suspect]
     Active Substance: DARBEPOETIN ALFA
     Indication: PRODUCT USED FOR UNKNOWN INDICATION
     Dosage: UNK
     Route: 042
     Dates: start: 20150612, end: 20150626
  18. ROCALTROL [Suspect]
     Active Substance: CALCITRIOL
     Dosage: UNK
     Route: 042
     Dates: start: 20160415, end: 20160708

REACTIONS (5)
  - Hospitalisation [Recovering/Resolving]
  - Arteriovenous fistula site complication [Recovering/Resolving]
  - Sepsis [Fatal]
  - Hospitalisation [Recovering/Resolving]
  - Arteriovenous fistula site haemorrhage [Recovering/Resolving]

NARRATIVE: CASE EVENT DATE: 20150622
